FAERS Safety Report 4273228-1 (Version None)
Quarter: 2004Q1

REPORT INFORMATION
  Report Type: 
  Country: None (occurrence: None)
  Receive Date: 20040116
  Receipt Date: 20040105
  Transmission Date: 20041129
  Serious: Yes (Hospitalization)
  Sender: FDA-Public Use
  Company Number: FR-ROCHE-355031

PATIENT
  Age: 44 Year
  Sex: Female

DRUGS (5)
  1. APRANAX [Suspect]
     Route: 048
     Dates: start: 20031021, end: 20031022
  2. TRIATEC [Concomitant]
     Indication: ESSENTIAL HYPERTENSION
     Route: 048
  3. MOPRAL [Concomitant]
     Route: 048
  4. LEVOTHYROXINE SODIUM [Concomitant]
     Route: 048
  5. TOPALGIC [Concomitant]
     Route: 048

REACTIONS (2)
  - ECZEMA [None]
  - RASH [None]
